FAERS Safety Report 9748344 (Version 1)
Quarter: 2013Q4

REPORT INFORMATION
  Report Type: Spontaneous
  Country: US (occurrence: None)
  Receive Date: 20131209
  Receipt Date: 20131209
  Transmission Date: 20140711
  Serious: Yes (Death, Other)
  Sender: FDA-Public Use
  Company Number: FK201305159

PATIENT
  Age: 19 Year
  Sex: Male

DRUGS (3)
  1. MANNITOL [Suspect]
     Indication: POLYURIA
     Dosage: 8 G/M^2 BOLUS
     Route: 040
  2. MANNITOL [Suspect]
     Indication: ATYPICAL TERATOID/RHABDOID TUMOUR OF CNS
     Dosage: 8 G/M^2 BOLUS
     Route: 040
  3. CISPLATIN (CISPLATIN) [Concomitant]

REACTIONS (1)
  - Anaphylactic reaction [None]
